FAERS Safety Report 24559762 (Version 1)
Quarter: 2024Q4

REPORT INFORMATION
  Report Type: Report from Study
  Country: CA (occurrence: CA)
  Receive Date: 20241029
  Receipt Date: 20241029
  Transmission Date: 20250114
  Serious: Yes (Other)
  Sender: JOHNSON AND JOHNSON
  Company Number: CA-JNJFOC-20240915809

PATIENT
  Age: 41 Year
  Sex: Male
  Weight: 86 kg

DRUGS (2)
  1. REMICADE [Suspect]
     Active Substance: INFLIXIMAB
     Indication: Colitis ulcerative
     Route: 041
     Dates: start: 20240909
  2. REMICADE [Suspect]
     Active Substance: INFLIXIMAB
     Dosage: INCREASED 3RD INFUSION TO 2 WEEKS AFTER THE LAST AND THEN MAINTENACE AT 900MG Q4 WEEKS
     Route: 041
     Dates: start: 20240909, end: 20241004

REACTIONS (3)
  - Colectomy [Unknown]
  - Therapeutic response decreased [Unknown]
  - Off label use [Unknown]

NARRATIVE: CASE EVENT DATE: 20240101
